FAERS Safety Report 25971958 (Version 1)
Quarter: 2025Q4

REPORT INFORMATION
  Report Type: Report from Study
  Country: US (occurrence: US)
  Receive Date: 20251029
  Receipt Date: 20251029
  Transmission Date: 20260117
  Serious: Yes (Other)
  Sender: ALEXION PHARMACEUTICALS
  Company Number: US-ASTRAZENECA-202510NAM022964US

PATIENT
  Age: 40 Year
  Sex: Female

DRUGS (1)
  1. STRENSIQ [Suspect]
     Active Substance: ASFOTASE ALFA
     Indication: Phosphorus metabolism disorder
     Dosage: 2 MILLIGRAM/KILOGRAM, TIW
     Route: 065

REACTIONS (18)
  - Major depression [Unknown]
  - Autoimmune thyroiditis [Unknown]
  - Anxiety disorder [Unknown]
  - Irritable bowel syndrome [Unknown]
  - Mitral valve prolapse [Unknown]
  - Restless legs syndrome [Unknown]
  - Acne [Unknown]
  - Skin swelling [Unknown]
  - Hypoaesthesia [Unknown]
  - Neck pain [Unknown]
  - Back pain [Unknown]
  - Meniscus injury [Unknown]
  - Fatigue [Unknown]
  - Night sweats [Unknown]
  - Headache [Unknown]
  - Hyperhidrosis [Unknown]
  - Hypoaesthesia [Unknown]
  - Vitamin D decreased [Unknown]

NARRATIVE: CASE EVENT DATE: 20251002
